FAERS Safety Report 12739341 (Version 2)
Quarter: 2020Q2

REPORT INFORMATION
  Report Type: Spontaneous
  Country: CA (occurrence: CA)
  Receive Date: 20160913
  Receipt Date: 20200623
  Transmission Date: 20200713
  Serious: Yes (Other)
  Sender: FDA-Public Use
  Company Number: CA-009507513-1609CAN005646

PATIENT
  Age: 76 Year
  Sex: Female
  Weight: 86.17 kg

DRUGS (6)
  1. FOSAVANCE [Suspect]
     Active Substance: ALENDRONATE SODIUM\CHOLECALCIFEROL
     Indication: OSTEOPENIA
     Dosage: 1 EVERY 1 WEEK
     Route: 048
     Dates: start: 20150404, end: 20160102
  2. FOLIC ACID. [Concomitant]
     Active Substance: FOLIC ACID
  3. TRAMACET [Concomitant]
     Active Substance: ACETAMINOPHEN\TRAMADOL
  4. VITALUX (ASCORBIC ACID (+) BETA CAROTENE (+) COPPER (UNSPECIFIED) (+) [Concomitant]
  5. PRINIVIL [Concomitant]
     Active Substance: LISINOPRIL
  6. METHOTREXATE. [Concomitant]
     Active Substance: METHOTREXATE

REACTIONS (5)
  - Oesophageal injury [Unknown]
  - Chest pain [Unknown]
  - Dyspepsia [Unknown]
  - Heart rate abnormal [Unknown]
  - Myocardial infarction [Unknown]

NARRATIVE: CASE EVENT DATE: 20151201
